FAERS Safety Report 15781474 (Version 1)
Quarter: 2019Q1

REPORT INFORMATION
  Report Type: Spontaneous
  Country: IT (occurrence: IT)
  Receive Date: 20190102
  Receipt Date: 20190102
  Transmission Date: 20190417
  Serious: Yes (Hospitalization, Other)
  Sender: FDA-Public Use
  Company Number: IT-ASTRAZENECA-2018SF71193

PATIENT
  Age: 27213 Day
  Sex: Female

DRUGS (2)
  1. FASENRA [Suspect]
     Active Substance: BENRALIZUMAB
     Indication: EOSINOPHILIA
     Dosage: 30.0MG UNKNOWN
     Route: 058
     Dates: start: 20181212
  2. FASENRA [Suspect]
     Active Substance: BENRALIZUMAB
     Indication: ASTHMA
     Dosage: 30.0MG UNKNOWN
     Route: 058
     Dates: start: 20181212

REACTIONS (2)
  - Asthmatic crisis [Unknown]
  - Pyrexia [Unknown]

NARRATIVE: CASE EVENT DATE: 20181212
